FAERS Safety Report 14172802 (Version 1)
Quarter: 2017Q4

REPORT INFORMATION
  Report Type: Spontaneous
  Country: FR (occurrence: FR)
  Receive Date: 20171109
  Receipt Date: 20171109
  Transmission Date: 20180321
  Serious: No
  Sender: FDA-Public Use
  Company Number: FR-LUPIN PHARMACEUTICALS INC.-2017-04623

PATIENT
  Age: 54 Year
  Sex: Female

DRUGS (4)
  1. METRONIDAZOLE. [Suspect]
     Active Substance: METRONIDAZOLE
     Indication: POSTOPERATIVE WOUND INFECTION
     Dosage: UNK
     Route: 065
  2. CEFTRIAXONE. [Suspect]
     Active Substance: CEFTRIAXONE
     Indication: POSTOPERATIVE WOUND INFECTION
     Dosage: UNK
     Route: 065
  3. OFLOXACIN. [Suspect]
     Active Substance: OFLOXACIN
     Indication: CHOLECYSTITIS ACUTE
     Dosage: UNK
     Route: 065
  4. METRONIDAZOLE. [Suspect]
     Active Substance: METRONIDAZOLE
     Indication: CHOLECYSTITIS ACUTE
     Dosage: UNK
     Route: 065

REACTIONS (1)
  - Anti factor V antibody [Recovered/Resolved]
